FAERS Safety Report 6378052-1 (Version None)
Quarter: 2009Q3

REPORT INFORMATION
  Report Type: 
  Country: None (occurrence: None)
  Receive Date: 20090925
  Receipt Date: 20090915
  Transmission Date: 20100115
  Serious: Yes (Other)
  Sender: FDA-Public Use
  Company Number: NZ-ABBOTT-09P-118-0588646-00

PATIENT
  Sex: Female
  Weight: 38 kg

DRUGS (3)
  1. HUMIRA [Suspect]
     Indication: RHEUMATOID ARTHRITIS
     Dates: start: 20090522, end: 20090703
  2. METHOTREXATE [Concomitant]
     Indication: DRUG USE FOR UNKNOWN INDICATION
  3. ACETAMINOPHEN [Concomitant]
     Indication: PAIN

REACTIONS (16)
  - ARTHROPATHY [None]
  - AVULSION FRACTURE [None]
  - AXILLARY PAIN [None]
  - BONE EROSION [None]
  - DIARRHOEA [None]
  - HEADACHE [None]
  - MOUTH ULCERATION [None]
  - NOCTURIA [None]
  - OEDEMA PERIPHERAL [None]
  - PAIN IN EXTREMITY [None]
  - PLEURITIC PAIN [None]
  - POLLAKIURIA [None]
  - PULMONARY MASS [None]
  - SKIN NODULE [None]
  - SLEEP DISORDER [None]
  - SYNOVIAL CYST [None]
